FAERS Safety Report 6306462-7 (Version None)
Quarter: 2009Q3

REPORT INFORMATION
  Report Type: 
  Country: None (occurrence: None)
  Receive Date: 20090812
  Receipt Date: 20090805
  Transmission Date: 20100115
  Serious: Yes (Hospitalization, Disabling, Other)
  Sender: FDA-Public Use
  Company Number: US-BAXTER-2009BH012576

PATIENT
  Age: 26 Year
  Sex: Female

DRUGS (3)
  1. PROMETHAZINE [Suspect]
     Indication: SICKLE CELL ANAEMIA WITH CRISIS
     Route: 042
  2. SODIUM CHLORIDE [Concomitant]
     Indication: SICKLE CELL ANAEMIA WITH CRISIS
     Route: 042
  3. MEPERIDINE HCL [Concomitant]
     Indication: SICKLE CELL ANAEMIA WITH CRISIS
     Route: 042

REACTIONS (7)
  - ARTERIAL OCCLUSIVE DISEASE [None]
  - DRUG ADMINISTRATION ERROR [None]
  - PAIN [None]
  - SKIN DISCOLOURATION [None]
  - SWELLING [None]
  - VASOSPASM [None]
  - VENOUS THROMBOSIS [None]
